FAERS Safety Report 7969151-9 (Version None)
Quarter: 2011Q4

REPORT INFORMATION
  Report Type: 
  Country: None (occurrence: None)
  Receive Date: 20111209
  Receipt Date: 20111207
  Transmission Date: 20120403
  Serious: Yes (Hospitalization, Other)
  Sender: FDA-Public Use
  Company Number: US-TEVA-312599USA

PATIENT
  Age: 76 Year
  Sex: Female
  Weight: 74.002 kg

DRUGS (4)
  1. AZILECT [Suspect]
     Indication: PARKINSON'S DISEASE
     Dosage: 1 MILLIGRAM;
     Route: 048
  2. PRAMIPRAXOLE [Concomitant]
     Indication: PARKINSON'S DISEASE
     Dosage: .25 MILLIGRAM;
     Route: 048
  3. CARBIDOPA AND LEVODOPA [Concomitant]
     Indication: PARKINSON'S DISEASE
     Route: 048
  4. LEVOTHYROXINE SODIUM [Concomitant]
     Indication: HORMONE THERAPY
     Dosage: .25 MILLIGRAM;
     Route: 048

REACTIONS (2)
  - FALL [None]
  - HIP FRACTURE [None]
